FAERS Safety Report 22132631 (Version 1)
Quarter: 2023Q1

REPORT INFORMATION
  Report Type: Report from Study
  Country: CA (occurrence: CA)
  Receive Date: 20230323
  Receipt Date: 20230323
  Transmission Date: 20230417
  Serious: Yes (Death)
  Sender: FDA-Public Use
  Company Number: CA-BEH-2023156824

PATIENT
  Age: 90 Year
  Sex: Male
  Weight: 71 kg

DRUGS (1)
  1. HIZENTRA [Suspect]
     Active Substance: HUMAN IMMUNOGLOBULIN G
     Indication: Dermatomyositis
     Dosage: 20 GRAM, BIW
     Route: 065
     Dates: start: 20200529, end: 20230120

REACTIONS (3)
  - Death [Fatal]
  - No adverse event [Unknown]
  - Off label use [Unknown]

NARRATIVE: CASE EVENT DATE: 20230120
